FAERS Safety Report 8640403 (Version 4)
Quarter: 2013Q1

REPORT INFORMATION
  Report Type: Spontaneous
  Country: US (occurrence: US)
  Receive Date: 20120628
  Receipt Date: 20130301
  Transmission Date: 20140127
  Serious: Yes (Other)
  Sender: FDA-Public Use
  Company Number: US-PFIZER INC-2012152284

PATIENT
  Age: 70 Year
  Sex: Female
  Weight: 108.84 kg

DRUGS (6)
  1. DETROL LA [Suspect]
     Indication: INCONTINENCE
     Dosage: 4 MG, 1X/DAY
     Route: 048
     Dates: start: 2010, end: 201301
  2. DETROL LA [Suspect]
     Indication: BLADDER DISORDER
  3. LYRICA [Suspect]
     Indication: FIBROMYALGIA
     Dosage: 150 MG, 2X/DAY
     Route: 048
     Dates: start: 2010
  4. GLIMEPIRIDE [Suspect]
     Indication: TYPE 1 DIABETES MELLITUS
     Dosage: 4 MG, 1X/DAY
  5. LANTUS [Suspect]
     Indication: TYPE 1 DIABETES MELLITUS
     Dosage: 68 IU, 1X/DAY
  6. GLUCOPHAGE [Suspect]
     Indication: TYPE 1 DIABETES MELLITUS
     Dosage: 1000 MG, 1X/DAY

REACTIONS (5)
  - Accident [Unknown]
  - Blood glucose decreased [Recovered/Resolved]
  - Loss of consciousness [Recovered/Resolved]
  - Road traffic accident [Unknown]
  - Drug ineffective [Unknown]
